FAERS Safety Report 11275141 (Version 3)
Quarter: 2015Q3

REPORT INFORMATION
  Report Type: Report from Study
  Country: GB (occurrence: None)
  Receive Date: 20150714
  Receipt Date: 20150826
  Transmission Date: 20151125
  Serious: Yes (Disabling)
  Sender: FDA-Public Use
  Company Number: KAD201507-002163

PATIENT
  Age: 60 Year
  Sex: Male
  Weight: 74 kg

DRUGS (11)
  1. VITAMIN C [Concomitant]
     Active Substance: ASCORBIC ACID
  2. ABT-333 (DASABUVIR) [Suspect]
     Active Substance: DASABUVIR
     Indication: HEPATITIS C
     Dosage: TABLET, 250 MG, TWO IN ONE DAY (500 MG),ORAL
     Route: 048
     Dates: start: 20150608
  3. LEKOVIT CA (CHOLECALCIFEROL/VITAMIN D3, CALCIUM CARBONATE) [Concomitant]
  4. RIBAVIRIN 200 MG TABLETS (RIBAVIRIN) [Suspect]
     Active Substance: RIBAVIRIN
     Indication: HEPATITIS C
     Dosage: TOTAL DAILY DOSE:1200 MG DIVIDED TWICE DAILY, ORAL
     Route: 048
     Dates: start: 20150608, end: 20150703
  5. CITALOPRAM (CITALOPRAM HYDROBROMIDE) [Concomitant]
  6. COD LIVER OIL [Concomitant]
     Active Substance: COD LIVER OIL
  7. RAMIPRIL. [Concomitant]
     Active Substance: RAMIPRIL
  8. VITAMIN B (VITAMIN B COMPLEX) [Concomitant]
  9. VITAMIN D3 [Concomitant]
     Active Substance: CHOLECALCIFEROL
  10. ABT-450/RITONAVIR/ABT-267 (OMBITASVIR, PARITAPREVIR, RITONAVIR) [Suspect]
     Active Substance: OMBITASVIR\PARITAPREVIR\RITONAVIR
     Indication: HEPATITIS C
     Dosage: 150/100/25 MG IN QD (ONE IN ONE DAY), ORAL
     Route: 048
     Dates: start: 20150608
  11. INDAPAMIDE. [Concomitant]
     Active Substance: INDAPAMIDE

REACTIONS (2)
  - Affect lability [None]
  - Anger [None]

NARRATIVE: CASE EVENT DATE: 20150630
